FAERS Safety Report 17900587 (Version 1)
Quarter: 2020Q2

REPORT INFORMATION
  Report Type: Spontaneous
  Country: US (occurrence: US)
  Receive Date: 20200615
  Receipt Date: 20200615
  Transmission Date: 20200714
  Serious: No
  Sender: FDA-Public Use
  Company Number: None

PATIENT
  Sex: Male

DRUGS (1)
  1. INFLECTRA [Suspect]
     Active Substance: INFLIXIMAB-DYYB
     Indication: COLITIS ULCERATIVE
     Dosage: 500MG EVERY 6 WEEKS PIV
     Dates: start: 20200528, end: 20200528

REACTIONS (6)
  - Infusion related reaction [None]
  - Tachycardia [None]
  - Therapy interrupted [None]
  - Tremor [None]
  - Hyperhidrosis [None]
  - Pain [None]
